FAERS Safety Report 16802734 (Version 10)
Quarter: 2021Q3

REPORT INFORMATION
  Report Type: Report from Study
  Country: IN (occurrence: IN)
  Receive Date: 20190912
  Receipt Date: 20210722
  Transmission Date: 20211014
  Serious: Yes (Hospitalization, Other)
  Sender: FDA-Public Use
  Company Number: PHHO2019IN008860

PATIENT
  Age: 56 Year
  Sex: Female
  Weight: 53 kg

DRUGS (7)
  1. ALLERCET?DC [Concomitant]
     Indication: OTITIS MEDIA ACUTE
     Dosage: 5 (UNKNOWN UNITS), QD
     Route: 048
     Dates: start: 20190822, end: 20190828
  2. SECUKINUMAB. [Suspect]
     Active Substance: SECUKINUMAB
     Indication: HIDRADENITIS
     Dosage: UNK
     Route: 058
     Dates: start: 20190723, end: 20190828
  3. BECELAC FORTE [Concomitant]
     Indication: DIARRHOEA
     Dosage: 1 TABLET, QD
     Route: 048
     Dates: start: 20190817, end: 20190821
  4. IBUGESIC PLUS [Concomitant]
     Active Substance: ACETAMINOPHEN\IBUPROFEN
     Indication: OTITIS MEDIA ACUTE
     Dosage: 2 DOSE, BID
     Route: 048
     Dates: start: 20190822, end: 20190827
  5. DOLO [Concomitant]
     Indication: PYREXIA
     Dosage: UNK
     Route: 065
     Dates: start: 20190828, end: 20190830
  6. XYLOMET [Concomitant]
     Indication: OTITIS MEDIA ACUTE
     Dosage: 2 (UNKNOWN UNITS), BID
     Route: 001
     Dates: start: 20190822, end: 20190827
  7. AUGMENTIN [Concomitant]
     Active Substance: AMOXICILLIN\CLAVULANATE POTASSIUM
     Indication: OTITIS MEDIA ACUTE
     Dosage: 1 G, BID
     Route: 048
     Dates: start: 20190822, end: 20190827

REACTIONS (1)
  - Meningitis bacterial [Recovering/Resolving]

NARRATIVE: CASE EVENT DATE: 20190828
